FAERS Safety Report 12907681 (Version 1)
Quarter: 2016Q4

REPORT INFORMATION
  Report Type: Spontaneous
  Country: US (occurrence: US)
  Receive Date: 20161103
  Receipt Date: 20161103
  Transmission Date: 20170207
  Serious: No
  Sender: FDA-Public Use
  Company Number: US-BAUSCH-BL-2016-020856

PATIENT
  Age: 57 Year
  Sex: Female

DRUGS (2)
  1. UCERIS [Suspect]
     Active Substance: BUDESONIDE
     Indication: CROHN^S DISEASE
     Route: 054
     Dates: start: 20160830
  2. ATORVASTATIN [Concomitant]
     Active Substance: ATORVASTATIN
     Indication: BLOOD CHOLESTEROL INCREASED
     Dosage: 1 PILL AT NIGHT, 3 TIMES A WEEK (MONDAY, WEDNESDAY AND FRIDAY)

REACTIONS (5)
  - Abdominal pain upper [Not Recovered/Not Resolved]
  - Asthenia [Not Recovered/Not Resolved]
  - Feeling abnormal [Not Recovered/Not Resolved]
  - Fatigue [Not Recovered/Not Resolved]
  - Off label use [Not Recovered/Not Resolved]

NARRATIVE: CASE EVENT DATE: 201609
